FAERS Safety Report 21760068 (Version 1)
Quarter: 2022Q4

REPORT INFORMATION
  Report Type: Spontaneous
  Country: US (occurrence: US)
  Receive Date: 20221221
  Receipt Date: 20221221
  Transmission Date: 20230113
  Serious: Yes (Life-Threatening, Hospitalization, Other)
  Sender: FDA-Public Use
  Company Number: US-SA-SAC20221220000829

PATIENT
  Age: 66 Year
  Sex: Male

DRUGS (19)
  1. TAXOTERE [Suspect]
     Active Substance: DOCETAXEL
     Dosage: 152 MG, DAY 5 EVERY 21 DAYS
     Route: 042
     Dates: start: 20221021
  2. OBINUTUZUMAB [Suspect]
     Active Substance: OBINUTUZUMAB
     Dosage: 1000MG
     Route: 042
     Dates: start: 20221004
  3. NAPTUMOMAB ESTAFENATOX [Suspect]
     Active Substance: NAPTUMOMAB ESTAFENATOX
     Dosage: 893 MCG ADMINISTERED IV ON DAYS 1-4 EVERY 21 DAYS
     Route: 042
     Dates: start: 20221017
  4. SENNA-S [DOCUSATE SODIUM;SENNOSIDE A+B] [Concomitant]
     Indication: Constipation
     Dosage: TWO TABLETS ORALLY TWICE DAILY
     Route: 048
     Dates: start: 20220830
  5. ESCITALOPRAM [Concomitant]
     Active Substance: ESCITALOPRAM OXALATE
     Indication: Anxiety
     Dosage: 20 MG ORALLY ONCE A DAY
     Route: 048
  6. ESCITALOPRAM [Concomitant]
     Active Substance: ESCITALOPRAM OXALATE
     Indication: Depression
  7. TRAMADOL [Concomitant]
     Active Substance: TRAMADOL
     Indication: Pathological fracture
     Dosage: 100 MG ORALLY EVERY 6 HOURS
     Route: 048
     Dates: start: 20220816
  8. XARELTO [Concomitant]
     Active Substance: RIVAROXABAN
     Indication: Hypertension
     Dosage: 20 MG ORALLY ONCE DAILY
     Route: 048
     Dates: start: 20220920
  9. ALBUTEROL SULFATE [Concomitant]
     Active Substance: ALBUTEROL SULFATE
     Indication: Chronic obstructive pulmonary disease
     Dosage: 90 MCG INHALATION AS NEEDED
  10. OMEPRAZOLE [Concomitant]
     Active Substance: OMEPRAZOLE
     Indication: Gastrooesophageal reflux disease
     Dosage: 40 MG ORALLY ONCE DAILY AND AS NEEDED
     Route: 048
  11. TYLENOL [Concomitant]
     Active Substance: ACETAMINOPHEN
     Indication: Pathological fracture
     Dosage: 650 MG ORALLY EVERY 4 HOURS
  12. LACTULOSE [Concomitant]
     Active Substance: LACTULOSE
     Indication: Constipation
     Dosage: (10G/15ML) 20 ML ORALLY EVERY 2 HOURS AS NEEDED
  13. DEXAMETHASONE [Concomitant]
     Active Substance: DEXAMETHASONE
     Dosage: 8 MG ORALLY TWICE DAILY DAY
  14. HYCODAN [HOMATROPINE METHYLBROMIDE;HYDROCODONE BITARTRATE] [Concomitant]
     Indication: Cough
     Dosage: 5 ML ORALLY EVERY 4-6 HOURS AS NEEDED
  15. BENZONATATE [Concomitant]
     Active Substance: BENZONATATE
     Indication: Cough
     Dosage: 100 MG ORALLY THREE TIMES DAILY AS NEEDED
  16. AZITHROMYCIN [Concomitant]
     Active Substance: AZITHROMYCIN
     Dosage: 500 MG ORALLY ONCE DAILY FOR 5 DAYS
  17. CEFPODOXIME [Concomitant]
     Active Substance: CEFPODOXIME
     Dosage: 200 MG ORALLY TWICE A DAY FOR 10 DAYS
  18. LASIX [Concomitant]
     Active Substance: FUROSEMIDE
     Dosage: 20 MG, QD
  19. CODEINE PHOSPHATE AND GUAIFENESIN [Concomitant]
     Active Substance: CODEINE PHOSPHATE\GUAIFENESIN
     Indication: Cough
     Dosage: 5 ML ORALLY EVERY 6 HOURS AS NEEDED FOR COUGH FOR 10 DAYS, GUAIFENESIN 600 MG ORALLY TWICE DAILY FOR

REACTIONS (2)
  - Hypervolaemia [Unknown]
  - Pneumonia [Unknown]
